FAERS Safety Report 5443671-3 (Version None)
Quarter: 2007Q3

REPORT INFORMATION
  Report Type: 
  Country: None (occurrence: None)
  Receive Date: 20070831
  Receipt Date: 20070822
  Transmission Date: 20080115
  Serious: Yes (Other)
  Sender: FDA-Public Use
  Company Number: OSCN-PR-0708S-0325

PATIENT
  Sex: Female

DRUGS (1)
  1. OMNISCAN [Suspect]
     Indication: DRUG USE FOR UNKNOWN INDICATION
     Dosage: 60 ML, SINGLE DOSE, I.V.
     Route: 042
     Dates: start: 20070315, end: 20070315

REACTIONS (1)
  - NEPHROGENIC SYSTEMIC FIBROSIS [None]
